FAERS Safety Report 25852938 (Version 1)
Quarter: 2025Q3

REPORT INFORMATION
  Report Type: Spontaneous
  Country: EU (occurrence: EU)
  Receive Date: 20250926
  Receipt Date: 20250926
  Transmission Date: 20251021
  Serious: Yes (Hospitalization, Other)
  Sender: PFIZER
  Company Number: None

PATIENT
  Age: 34 Year
  Sex: Female

DRUGS (8)
  1. NAFARELIN ACETATE [Suspect]
     Active Substance: NAFARELIN ACETATE
     Indication: Assisted reproductive technology
     Dosage: 0.4 MG, 1X/DAY
     Dates: start: 20250625, end: 20250718
  2. NAFARELIN ACETATE [Suspect]
     Active Substance: NAFARELIN ACETATE
     Dates: start: 20250719
  3. MENOTROPINS [Suspect]
     Active Substance: MENOTROPINS
     Indication: Assisted reproductive technology
     Dosage: 225 IU, 1X/DAY
     Dates: start: 20250710, end: 20250714
  4. MENOTROPINS [Suspect]
     Active Substance: MENOTROPINS
     Dosage: 175 IU, 1X/DAY
     Dates: start: 20250715, end: 20250716
  5. MENOTROPINS [Suspect]
     Active Substance: MENOTROPINS
     Dates: start: 20250717
  6. MENOTROPINS [Suspect]
     Active Substance: MENOTROPINS
     Dates: start: 20250718
  7. CHORIOGONADOTROPIN ALFA [Suspect]
     Active Substance: CHORIOGONADOTROPIN ALFA
     Indication: Assisted reproductive technology
     Dates: start: 20250719
  8. PROGESTERONE [Suspect]
     Active Substance: PROGESTERONE
     Indication: Assisted reproductive technology
     Dosage: 600 MG, 1X/DAY
     Dates: start: 20250722

REACTIONS (3)
  - Ovarian hyperstimulation syndrome [Recovered/Resolved]
  - Dyspnoea [Recovered/Resolved]
  - Abdominal pain lower [Recovered/Resolved]

NARRATIVE: CASE EVENT DATE: 20250805
